FAERS Safety Report 15721329 (Version 1)
Quarter: 2018Q4

REPORT INFORMATION
  Report Type: Spontaneous
  Country: GB (occurrence: GB)
  Receive Date: 20181214
  Receipt Date: 20181214
  Transmission Date: 20190205
  Serious: Yes (Disabling)
  Sender: FDA-Public Use
  Company Number: GB-ACCORD-095754

PATIENT
  Age: 58 Year
  Sex: Male
  Weight: 82.55 kg

DRUGS (4)
  1. BISOPROLOL [Concomitant]
     Active Substance: BISOPROLOL
  2. ZAPAIN [Concomitant]
     Active Substance: ACETAMINOPHEN\CODEINE PHOSPHATE
  3. LISINOPRIL. [Suspect]
     Active Substance: LISINOPRIL
     Indication: HYPERTENSION
     Route: 048
     Dates: start: 20130301, end: 20170301
  4. ETODOLAC. [Concomitant]
     Active Substance: ETODOLAC

REACTIONS (8)
  - Psoriasis [Not Recovered/Not Resolved]
  - Anosmia [Not Recovered/Not Resolved]
  - Insomnia [Recovering/Resolving]
  - Dyspepsia [Recovered/Resolved]
  - Mood altered [Not Recovered/Not Resolved]
  - Ageusia [Not Recovered/Not Resolved]
  - Erectile dysfunction [Not Recovered/Not Resolved]
  - Nausea [Recovering/Resolving]

NARRATIVE: CASE EVENT DATE: 20140110
